FAERS Safety Report 6119219-7 (Version None)
Quarter: 2009Q1

REPORT INFORMATION
  Report Type: 
  Country: None (occurrence: None)
  Receive Date: 20090316
  Receipt Date: 20090304
  Transmission Date: 20090719
  Serious: Yes (Hospitalization)
  Sender: FDA-Public Use
  Company Number: US-ROCHE-619736

PATIENT
  Sex: Female

DRUGS (6)
  1. PEG-INTERFERON A-2A (RO 25-8310) [Suspect]
     Indication: HEPATITIS C
     Dosage: FORM: PRE FILLED SYRINGE
     Route: 065
     Dates: start: 20080214
  2. RIBAPAK [Suspect]
     Indication: HEPATITIS C
     Route: 065
     Dates: start: 20080214
  3. XANAX [Concomitant]
     Indication: OBSESSIVE-COMPULSIVE DISORDER
  4. XANAX [Concomitant]
     Dosage: DECREASED DOSE
     Dates: start: 20090201
  5. HYDROCHLOROTHIAZIDE [Concomitant]
     Indication: HYPERTENSION
  6. HYDROCHLOROTHIAZIDE [Concomitant]
     Dosage: REDUCED TO HALF
     Dates: start: 20090201

REACTIONS (6)
  - BLOOD PRESSURE DIASTOLIC INCREASED [None]
  - CARTILAGE INJURY [None]
  - DIZZINESS [None]
  - HEART RATE INCREASED [None]
  - PANIC ATTACK [None]
  - WHITE BLOOD CELL COUNT DECREASED [None]
